FAERS Safety Report 4664546-3 (Version None)
Quarter: 2005Q2

REPORT INFORMATION
  Report Type: 
  Country: None (occurrence: None)
  Receive Date: 20050518
  Receipt Date: 20050517
  Transmission Date: 20051028
  Serious: Yes (Hospitalization)
  Sender: FDA-Public Use
  Company Number: US-GLAXOSMITHKLINE-A0429381B

PATIENT
  Age: 69 Year

DRUGS (10)
  1. MELPHALAN [Suspect]
     Indication: MULTIPLE MYELOMA
     Dosage: 250MG SINGLE DOSE
     Route: 042
     Dates: start: 20031028
  2. ETOPOSIDE [Suspect]
     Indication: MULTIPLE MYELOMA
     Dates: start: 20031024, end: 20031027
  3. CARMUSTINE [Suspect]
     Indication: MULTIPLE MYELOMA
     Dates: start: 20031024
  4. NEURONTIN [Concomitant]
     Dosage: 400MG THREE TIMES PER DAY
  5. DARVOCET [Concomitant]
     Route: 048
  6. ACYCLOVIR [Concomitant]
     Dosage: 400MG TWICE PER DAY
  7. AUGMENTIN [Concomitant]
     Dosage: 850MG TWICE PER DAY
  8. FOLIC ACID [Concomitant]
  9. CALCIUM GLUCONATE [Concomitant]
  10. TENORMIN [Concomitant]

REACTIONS (8)
  - ARRHYTHMIA SUPRAVENTRICULAR [None]
  - BACTERAEMIA [None]
  - BACTERIA STOOL IDENTIFIED [None]
  - DIARRHOEA [None]
  - ENTEROCOCCAL BACTERAEMIA [None]
  - FLUID OVERLOAD [None]
  - HYPERTENSION [None]
  - NAUSEA [None]
